FAERS Safety Report 17374486 (Version 1)
Quarter: 2020Q1

REPORT INFORMATION
  Report Type: Spontaneous
  Country: US (occurrence: US)
  Receive Date: 20200205
  Receipt Date: 20200205
  Transmission Date: 20200409
  Serious: Yes (Other)
  Sender: FDA-Public Use
  Company Number: NVSC2020US028566

PATIENT
  Age: 61 Year
  Sex: Male

DRUGS (4)
  1. DARBEPOETIN ALFA [Concomitant]
     Active Substance: DARBEPOETIN ALFA
     Indication: PRODUCT USED FOR UNKNOWN INDICATION
     Dosage: UNK UNK, QW
     Route: 065
  2. ZOSYN [Suspect]
     Active Substance: PIPERACILLIN SODIUM\TAZOBACTAM SODIUM
     Indication: PYREXIA
     Dosage: UNK
     Route: 065
  3. VANCOMYCIN [Suspect]
     Active Substance: VANCOMYCIN
     Indication: PYREXIA
     Dosage: UNK
     Route: 065
  4. RITUXIMAB. [Concomitant]
     Active Substance: RITUXIMAB
     Indication: PRODUCT USED FOR UNKNOWN INDICATION
     Dosage: 375 MG/M2
     Route: 065

REACTIONS (9)
  - Thrombocytopenia [Recovered/Resolved]
  - Ecchymosis [Unknown]
  - Dyspnoea [Unknown]
  - Hypotension [Unknown]
  - Melaena [Unknown]
  - Epistaxis [Unknown]
  - Anaemia [Unknown]
  - Haemolysis [Unknown]
  - Product use in unapproved indication [Unknown]
